FAERS Safety Report 7338725-0 (Version None)
Quarter: 2011Q1

REPORT INFORMATION
  Report Type: 
  Country: None (occurrence: None)
  Receive Date: 20110308
  Receipt Date: 20110228
  Transmission Date: 20110831
  Serious: Yes (Disabling)
  Sender: FDA-Public Use
  Company Number: B0703384A

PATIENT
  Sex: Male

DRUGS (5)
  1. ALKERAN [Suspect]
     Indication: STEM CELL TRANSPLANT
     Dosage: 140MGM2 PER DAY
     Route: 042
     Dates: start: 20050424, end: 20050425
  2. UNKNOWN DRUG [Concomitant]
     Dosage: 5IU3 PER DAY
     Dates: start: 20050423, end: 20050518
  3. NEUTROGIN [Concomitant]
     Dosage: 250MCG PER DAY
     Dates: start: 20050506, end: 20050508
  4. KYTRIL [Concomitant]
     Dosage: 3MG PER DAY
     Route: 042
     Dates: start: 20050424, end: 20050425
  5. TAGAMET [Concomitant]
     Dosage: 400MG PER DAY
     Route: 042
     Dates: start: 20050423, end: 20050518

REACTIONS (3)
  - PNEUMONIA [None]
  - PYREXIA [None]
  - RESPIRATORY FAILURE [None]
